FAERS Safety Report 4298572-3 (Version None)
Quarter: 2004Q1

REPORT INFORMATION
  Report Type: 
  Country: None (occurrence: None)
  Receive Date: 20040126
  Receipt Date: 20030923
  Transmission Date: 20041129
  Serious: No
  Sender: FDA-Public Use
  Company Number: USA030948046

PATIENT
  Age: 11 Year
  Sex: Female
  Weight: 36 kg

DRUGS (1)
  1. STRATTERA [Suspect]
     Dosage: 40 MG/IN THE EVENING
     Dates: start: 20030901

REACTIONS (6)
  - ABDOMINAL PAIN UPPER [None]
  - DYSPEPSIA [None]
  - HOT FLUSH [None]
  - NIGHTMARE [None]
  - SLEEP TALKING [None]
  - SOMNOLENCE [None]
